FAERS Safety Report 14667359 (Version 1)
Quarter: 2018Q1

REPORT INFORMATION
  Report Type: Spontaneous
  Country: NL (occurrence: NL)
  Receive Date: 20180322
  Receipt Date: 20180322
  Transmission Date: 20180509
  Serious: Yes (Death, Other)
  Sender: FDA-Public Use
  Company Number: NL-BAYER-2018-053550

PATIENT
  Age: 66 Year
  Sex: Male

DRUGS (6)
  1. XOFIGO [Suspect]
     Active Substance: RADIUM RA-223 DICHLORIDE
     Indication: PROSTATE CANCER METASTATIC
     Dosage: RECEIVED 6 CYCLES
     Dates: start: 201611, end: 201703
  2. PARACETAMOL [Concomitant]
     Active Substance: ACETAMINOPHEN
     Indication: BACK PAIN
     Dosage: 4X1000
  3. DOCETAXEL. [Concomitant]
     Active Substance: DOCETAXEL
     Indication: PROSTATE CANCER METASTATIC
     Dosage: RECEIVED 10 CYCLES
     Dates: end: 201703
  4. DOCETAXEL. [Concomitant]
     Active Substance: DOCETAXEL
     Indication: METASTASES TO BONE
  5. XOFIGO [Suspect]
     Active Substance: RADIUM RA-223 DICHLORIDE
     Indication: METASTASES TO BONE
  6. OXYNORM [Concomitant]
     Active Substance: OXYCODONE HYDROCHLORIDE
     Indication: BACK PAIN
     Dosage: 5 MG, PRN

REACTIONS (10)
  - Nephrolithiasis [None]
  - Hydronephrosis [None]
  - Nail toxicity [None]
  - Renal failure [None]
  - Polyneuropathy [None]
  - Prostatic specific antigen increased [None]
  - Lymphadenopathy [None]
  - Metastases to bone [None]
  - Metastases to lymph nodes [None]
  - Back pain [None]

NARRATIVE: CASE EVENT DATE: 201702
